FAERS Safety Report 4752151-X (Version None)
Quarter: 2005Q3

REPORT INFORMATION
  Report Type: 
  Country: None (occurrence: None)
  Receive Date: 20050825
  Receipt Date: 20040519
  Transmission Date: 20060218
  Serious: Yes (Death, Life-Threatening, Hospitalization, Disabling, Other)
  Sender: FDA-Public Use
  Company Number: IE-NOVOPROD-237146

PATIENT
  Sex: Male
  Weight: 3 kg

DRUGS (4)
  1. NOVORAPID PENFILL 3.0 ML [Suspect]
     Indication: DIABETES MELLITUS INSULIN-DEPENDENT
     Dosage: UNK IU, UNK
     Route: 015
     Dates: start: 20031108
  2. BENSYLPENICILLIN [Concomitant]
     Dosage: 165 MG, BID
     Route: 042
     Dates: start: 20040516, end: 20040516
  3. INSULATARD PENFILL [Concomitant]
     Indication: DIABETES MELLITUS INSULIN-DEPENDENT
     Route: 015
     Dates: start: 20031108
  4. BUPIVACAINE [Concomitant]
     Indication: SPINAL ANAESTHESIA
     Dosage: 0.4%,3 ML
     Route: 015
     Dates: start: 20040516, end: 20040516

REACTIONS (5)
  - BRADYCARDIA NEONATAL [None]
  - CONVULSION NEONATAL [None]
  - ENCEPHALOPATHY NEONATAL [None]
  - FOETAL DISTRESS SYNDROME [None]
  - MATERNAL DRUGS AFFECTING FOETUS [None]
